FAERS Safety Report 9062849 (Version 2)
Quarter: 2013Q1

REPORT INFORMATION
  Report Type: Spontaneous
  Country: US (occurrence: US)
  Receive Date: 20130213
  Receipt Date: 20130311
  Transmission Date: 20140127
  Serious: Yes (Other)
  Sender: FDA-Public Use
  Company Number: US-PURDUE-USA-2013-0098673

PATIENT
  Age: 69 None
  Sex: Female
  Weight: 91.16 kg

DRUGS (1)
  1. BUTRANS [Suspect]
     Indication: BACK PAIN
     Dosage: 10 MCG/HR, WEEKLY
     Route: 062
     Dates: start: 20121112, end: 20130211

REACTIONS (5)
  - Arthroscopy [Unknown]
  - Application site rash [Recovered/Resolved]
  - Application site pain [Recovered/Resolved]
  - Application site burn [Not Recovered/Not Resolved]
  - Application site pruritus [Unknown]
